FAERS Safety Report 4655961-2 (Version None)
Quarter: 2005Q2

REPORT INFORMATION
  Report Type: 
  Country: None (occurrence: None)
  Receive Date: 20050506
  Receipt Date: 20050506
  Transmission Date: 20051028
  Serious: Yes (Death)
  Sender: FDA-Public Use
  Company Number: None

PATIENT
  Age: 17 Year
  Sex: Female
  Weight: 61.7 kg

DRUGS (5)
  1. CYTARABINE [Suspect]
     Indication: ACUTE MYELOID LEUKAEMIA
     Dosage: 175MG IV   Q12H  X 16 DOSES
     Route: 042
     Dates: start: 20050413, end: 20050421
  2. ETOPOSIDE [Suspect]
     Dosage: 175MG IV OVER 4 HOURS Q24H X 5 DOSES
     Route: 042
     Dates: start: 20050413, end: 20050418
  3. DAUNOMYCIN 20MG, BEDFORD [Suspect]
     Indication: ACUTE MYELOID LEUKAEMIA
     Dosage: DAUNOMYCIN 90MG IV OVER 6 HOURS Q48H X 3 DOSES
     Route: 042
     Dates: start: 20050413, end: 20050418
  4. VORICONAZOLE [Concomitant]
  5. .. [Concomitant]

REACTIONS (13)
  - ABDOMINAL DISTENSION [None]
  - ANURIA [None]
  - COAGULOPATHY [None]
  - COLITIS [None]
  - DEHYDRATION [None]
  - ESCHERICHIA SEPSIS [None]
  - FEBRILE NEUTROPENIA [None]
  - METABOLIC ACIDOSIS [None]
  - PERIPHERAL COLDNESS [None]
  - PUPIL FIXED [None]
  - SEPTIC SHOCK [None]
  - TACHYCARDIA [None]
  - TACHYPNOEA [None]
